FAERS Safety Report 16040799 (Version 1)
Quarter: 2019Q2

REPORT INFORMATION
  Report Type: Spontaneous
  Country: US (occurrence: US)
  Receive Date: 20190305
  Receipt Date: 20190305
  Transmission Date: 20190711
  Serious: Yes (Hospitalization)
  Sender: FDA-Public Use
  Company Number: None

PATIENT
  Age: 53 Year
  Sex: Female

DRUGS (13)
  1. HYDROCO/APAP 10/325 MG [Concomitant]
  2. ENBREL [Suspect]
     Active Substance: ETANERCEPT
     Indication: RHEUMATOID ARTHRITIS
     Dosage: ?          OTHER FREQUENCY:ONCE A WEEK;?
     Route: 058
  3. AMLODIPINE 10 MG [Concomitant]
     Active Substance: AMLODIPINE BESYLATE
  4. CYCLOBENZAPRINE 10 MG [Concomitant]
     Active Substance: CYCLOBENZAPRINE
  5. FUROSEMIDE 20 MG [Concomitant]
     Active Substance: FUROSEMIDE
  6. ALPRAZOLAM 1 MG [Concomitant]
     Active Substance: ALPRAZOLAM
  7. MELOXICAM 15 MG [Concomitant]
     Active Substance: MELOXICAM
  8. LOSARTAN /HCTZ 100/25 [Concomitant]
  9. POTASSIUM CHLORIDE 20MEQ [Concomitant]
     Active Substance: POTASSIUM CHLORIDE
  10. LETROZOLE 2.5 MG [Concomitant]
     Active Substance: LETROZOLE
  11. DULOXETINE 60 MG [Concomitant]
     Active Substance: DULOXETINE
  12. ONDANSETRON 4 MG [Concomitant]
     Active Substance: ONDANSETRON
  13. HYDRALAZINE 50 MG [Concomitant]

REACTIONS (2)
  - Therapy cessation [None]
  - Spinal operation [None]

NARRATIVE: CASE EVENT DATE: 20190121
